FAERS Safety Report 6838776-6 (Version None)
Quarter: 2010Q3

REPORT INFORMATION
  Report Type: 
  Country: None (occurrence: None)
  Receive Date: 20100713
  Receipt Date: 20070702
  Transmission Date: 20110219
  Serious: No
  Sender: FDA-Public Use
  Company Number: US-PFIZER INC-2007036023

PATIENT
  Sex: Female
  Weight: 52.62 kg

DRUGS (5)
  1. CHANTIX [Suspect]
     Indication: SMOKING CESSATION THERAPY
     Route: 048
     Dates: start: 20070401, end: 20070401
  2. LIPITOR [Suspect]
     Indication: BLOOD CHOLESTEROL
     Route: 048
     Dates: end: 20070430
  3. ACETYLSALICYLIC ACID [Concomitant]
  4. EFFEXOR [Concomitant]
  5. VERAPAMIL [Concomitant]

REACTIONS (4)
  - ABDOMINAL DISCOMFORT [None]
  - DRUG EFFECT DECREASED [None]
  - DYSPEPSIA [None]
  - VOMITING [None]
